FAERS Safety Report 9995205 (Version 1)
Quarter: 2014Q1

REPORT INFORMATION
  Report Type: Report from Study
  Country: NO (occurrence: NO)
  Receive Date: 20140311
  Receipt Date: 20140311
  Transmission Date: 20141002
  Serious: Yes (Other)
  Sender: FDA-Public Use
  Company Number: NO-BAXTER-2014BAX012303

PATIENT
  Sex: 0

DRUGS (6)
  1. FEIBA 1000 E PULVER OG V?SKE TIL INFUSJONSV?SKE, OPPL?SNING [Suspect]
     Indication: FACTOR VIII INHIBITION
     Route: 065
  2. FEIBA 1000 E PULVER OG V?SKE TIL INFUSJONSV?SKE, OPPL?SNING [Suspect]
     Dosage: IN THREE DIVIDED DOSES
     Route: 065
  3. FEIBA 1000 E PULVER OG V?SKE TIL INFUSJONSV?SKE, OPPL?SNING [Suspect]
     Route: 065
  4. FEIBA 1000 E PULVER OG V?SKE TIL INFUSJONSV?SKE, OPPL?SNING [Suspect]
     Route: 065
  5. RFVIIA [Suspect]
     Indication: FACTOR VIII INHIBITION
     Dosage: FIRST 2 DAYS
     Route: 065
  6. RFVIIA [Suspect]
     Dosage: THE NEXT 3 DAYS
     Route: 065

REACTIONS (1)
  - Treatment failure [Unknown]
